FAERS Safety Report 7399442-4 (Version None)
Quarter: 2011Q2

REPORT INFORMATION
  Report Type: 
  Country: None (occurrence: None)
  Receive Date: 20110407
  Receipt Date: 20110325
  Transmission Date: 20111010
  Serious: Yes (Other)
  Sender: FDA-Public Use
  Company Number: PHHY2011US24977

PATIENT
  Age: 10 Year
  Sex: Female

DRUGS (2)
  1. FOCALIN XR [Suspect]
     Dosage: 20 MG, BID
  2. INTUNIV [Concomitant]

REACTIONS (5)
  - FATIGUE [None]
  - PLATELET COUNT DECREASED [None]
  - CONTUSION [None]
  - WEIGHT DECREASED [None]
  - DEPRESSION [None]
